FAERS Safety Report 24288655 (Version 2)
Quarter: 2025Q2

REPORT INFORMATION
  Report Type: Spontaneous
  Country: GR (occurrence: GR)
  Receive Date: 20240906
  Receipt Date: 20250605
  Transmission Date: 20250717
  Serious: Yes (Other)
  Sender: CELLTRION
  Company Number: None

PATIENT

DRUGS (4)
  1. INFLIXIMAB [Suspect]
     Active Substance: INFLIXIMAB
     Indication: Rheumatoid arthritis
     Route: 058
     Dates: start: 20240226
  2. INFLIXIMAB [Suspect]
     Active Substance: INFLIXIMAB
     Route: 058
     Dates: start: 20240304
  3. CO IPERTAS [Concomitant]
     Indication: Hypertension
     Route: 048
     Dates: start: 20230425
  4. ATORVASTATIN CALCIUM\EZETIMIBE [Concomitant]
     Active Substance: ATORVASTATIN CALCIUM\EZETIMIBE
     Indication: Dyslipidaemia
     Route: 048
     Dates: start: 20230425

REACTIONS (3)
  - Injection site rash [Not Recovered/Not Resolved]
  - Rash pruritic [Not Recovered/Not Resolved]
  - Overdose [Unknown]

NARRATIVE: CASE EVENT DATE: 20240226
